FAERS Safety Report 5309791-9 (Version None)
Quarter: 2007Q2

REPORT INFORMATION
  Report Type: 
  Country: None (occurrence: None)
  Receive Date: 20070427
  Receipt Date: 20060327
  Transmission Date: 20071010
  Serious: No
  Sender: FDA-Public Use
  Company Number: US-GLAXOSMITHKLINE-A0599162A

PATIENT
  Age: 29 Year
  Sex: Female

DRUGS (2)
  1. ZOFRAN [Suspect]
     Indication: HYPEREMESIS GRAVIDARUM
     Dosage: 8MG AS REQUIRED
     Route: 048
     Dates: start: 20060310
  2. ZITHROMAX [Concomitant]

REACTIONS (3)
  - DRUG EXPOSURE DURING PREGNANCY [None]
  - PAIN IN JAW [None]
  - TOOTHACHE [None]
